FAERS Safety Report 19088085 (Version 2)
Quarter: 2021Q2

REPORT INFORMATION
  Report Type: Spontaneous
  Country: US (occurrence: US)
  Receive Date: 20210402
  Receipt Date: 20210514
  Transmission Date: 20210717
  Serious: No
  Sender: FDA-Public Use
  Company Number: US-ASTRAZENECA-2021A122868

PATIENT
  Age: 677 Month
  Sex: Male
  Weight: 108.9 kg

DRUGS (2)
  1. BYDUREON BCISE [Suspect]
     Active Substance: EXENATIDE
     Indication: TYPE 2 DIABETES MELLITUS
     Route: 058
  2. BYDUREON [Suspect]
     Active Substance: EXENATIDE
     Indication: TYPE 2 DIABETES MELLITUS
     Route: 058
     Dates: start: 2017

REACTIONS (7)
  - Device leakage [Unknown]
  - Product solubility abnormal [Unknown]
  - Device malfunction [Unknown]
  - Analgesic therapy [Unknown]
  - Somnolence [Unknown]
  - Product dose omission issue [Unknown]
  - Irritability [Unknown]

NARRATIVE: CASE EVENT DATE: 202010
